FAERS Safety Report 9306341 (Version 1)
Quarter: 2012Q4

REPORT INFORMATION
  Report Type: Spontaneous
  Country: DE (occurrence: None)
  Receive Date: 20121218
  Receipt Date: 20121218
  Transmission Date: 20130627
  Serious: Yes (Other)
  Sender: FDA-Public Use
  Company Number: DE-010084

PATIENT
  Age: 35 Year
  Sex: Female

DRUGS (6)
  1. MENOGON [Suspect]
     Indication: ASSISTED FERTILIZATION
     Route: 058
     Dates: start: 20120625, end: 20120705
  2. MENOGON [Suspect]
     Indication: ASSISTED FERTILIZATION
     Dates: start: 20120705, end: 20120707
  3. DECAPEPTYL GUN [Concomitant]
  4. METFORMIN [Concomitant]
  5. FOLIC ACID [Concomitant]
  6. CHORIONIC GONADOTROPIN [Concomitant]

REACTIONS (4)
  - Ascites [None]
  - Abdominal pain lower [None]
  - Ovarian hyperstimulation syndrome [None]
  - Unevaluable event [None]
